FAERS Safety Report 4613909-0 (Version None)
Quarter: 2005Q1

REPORT INFORMATION
  Report Type: 
  Country: None (occurrence: None)
  Receive Date: 20050321
  Receipt Date: 20040914
  Transmission Date: 20050727
  Serious: Yes (Life-Threatening)
  Sender: FDA-Public Use
  Company Number: JP-GLAXOSMITHKLINE-B0345561A

PATIENT
  Age: 54 Year
  Sex: Male

DRUGS (4)
  1. ZEFIX [Suspect]
     Indication: HEPATITIS B
     Dosage: 100MG PER DAY
     Route: 048
     Dates: start: 20020228, end: 20031113
  2. URSODEOXYCHOLIC ACID [Concomitant]
     Indication: HEPATITIS B
     Dosage: 600MG PER DAY
     Route: 048
     Dates: start: 19991102
  3. ECABET [Concomitant]
     Indication: GASTRIC ULCER
     Dosage: 3G PER DAY
     Route: 048
     Dates: start: 19991110
  4. NIZATIDINE [Concomitant]
     Indication: GASTRIC ULCER
     Dosage: 150MG PER DAY
     Route: 048
     Dates: start: 20000203

REACTIONS (3)
  - ALPHA 1 FOETOPROTEIN INCREASED [None]
  - HEPATIC NEOPLASM MALIGNANT [None]
  - PROTEIN INDUCED BY VITAMIN K ABSENCE OR ANTAGONIST II INCREASED [None]
